FAERS Safety Report 5205953-X (Version None)
Quarter: 2007Q1

REPORT INFORMATION
  Report Type: 
  Country: None (occurrence: None)
  Receive Date: 20070111
  Receipt Date: 20070108
  Transmission Date: 20070707
  Serious: Yes (Hospitalization)
  Sender: FDA-Public Use
  Company Number: FR-GLAXOSMITHKLINE-B0453545A

PATIENT
  Age: 15 Month
  Sex: Male
  Weight: 8.9 kg

DRUGS (2)
  1. ZOFRAN [Suspect]
     Dosage: 2MG CYCLIC
     Route: 042
     Dates: start: 20061207, end: 20061207
  2. ONCOVIN [Suspect]
     Indication: NEPHROBLASTOMA
     Dosage: .43MG CYCLIC
     Route: 042
     Dates: start: 20061207, end: 20061207

REACTIONS (7)
  - BLOOD PRESSURE DECREASED [None]
  - BRADYCARDIA [None]
  - CYANOSIS [None]
  - ERYTHEMA [None]
  - EYE DISORDER [None]
  - HYPERSENSITIVITY [None]
  - MILIA [None]
